FAERS Safety Report 6894087-4 (Version None)
Quarter: 2010Q3

REPORT INFORMATION
  Report Type: 
  Country: None (occurrence: None)
  Receive Date: 20100802
  Receipt Date: 20100719
  Transmission Date: 20110219
  Serious: Yes (Other)
  Sender: FDA-Public Use
  Company Number: DE-ELI_LILLY_AND_COMPANY-DE201006007105

PATIENT
  Sex: Female

DRUGS (7)
  1. FORTEO [Suspect]
     Indication: SPINAL FRACTURE
     Dosage: UNK, UNKNOWN
     Route: 058
     Dates: start: 20090625
  2. ISOSORBIDE DINITRATE [Concomitant]
     Dosage: 20 MG, UNKNOWN
     Route: 065
  3. BISOPROLOL [Concomitant]
     Dosage: 5 MG, EACH MORNING
     Route: 065
  4. MIRTAZAPIN [Concomitant]
     Dosage: UNK, UNKNOWN
     Route: 065
  5. ALPRAZOLAM [Concomitant]
     Dosage: UNK, UNKNOWN
     Route: 065
  6. HYDROCHLOROTHIAZIDE [Concomitant]
     Dosage: UNK, UNKNOWN
     Route: 065
  7. AMLODIPIN                          /00972401/ [Concomitant]
     Dosage: UNK, UNKNOWN
     Route: 065

REACTIONS (2)
  - GENERAL PHYSICAL HEALTH DETERIORATION [None]
  - RENAL NEOPLASM [None]
